FAERS Safety Report 12617750 (Version 2)
Quarter: 2016Q4

REPORT INFORMATION
  Report Type: Spontaneous
  Country: US (occurrence: US)
  Receive Date: 20160803
  Receipt Date: 20161107
  Transmission Date: 20170207
  Serious: No
  Sender: FDA-Public Use
  Company Number: US-PFIZER INC-2016345430

PATIENT
  Age: 60 Year
  Sex: Female

DRUGS (2)
  1. NEURONTIN [Suspect]
     Active Substance: GABAPENTIN
     Dosage: UNK
  2. AVELOX [Suspect]
     Active Substance: MOXIFLOXACIN HYDROCHLORIDE
     Dosage: UNK

REACTIONS (1)
  - Drug hypersensitivity [Unknown]
